FAERS Safety Report 24395191 (Version 1)
Quarter: 2024Q4

REPORT INFORMATION
  Report Type: Report from Study
  Country: US (occurrence: US)
  Receive Date: 20241004
  Receipt Date: 20241004
  Transmission Date: 20250115
  Serious: Yes (Hospitalization, Other)
  Sender: CSL BEHRING
  Company Number: US-BEH-2024179509

PATIENT
  Age: 36 Year
  Sex: Female
  Weight: 73 kg

DRUGS (1)
  1. HIZENTRA [Suspect]
     Active Substance: HUMAN IMMUNOGLOBULIN G
     Dosage: STRENGTH 1
     Route: 065

REACTIONS (8)
  - Bacterial infection [Unknown]
  - Staphylococcal infection [Unknown]
  - Drug ineffective [Unknown]
  - Urinary tract infection [Not Recovered/Not Resolved]
  - Infusion site mass [Unknown]
  - COVID-19 [Unknown]
  - Asthenia [Unknown]
  - Abscess limb [Not Recovered/Not Resolved]

NARRATIVE: CASE EVENT DATE: 20240701
